FAERS Safety Report 7823438-9 (Version None)
Quarter: 2011Q4

REPORT INFORMATION
  Report Type: 
  Country: None (occurrence: None)
  Receive Date: 20111019
  Receipt Date: 20111011
  Transmission Date: 20120403
  Serious: Yes (Other)
  Sender: FDA-Public Use
  Company Number: US-UCBSA-043221

PATIENT
  Age: 25 Year
  Sex: Female

DRUGS (3)
  1. VIMPAT [Suspect]
     Dates: start: 20110801
  2. ZOMIG [Interacting]
  3. TOPAMAX [Concomitant]
     Dosage: TOTAL DAILY DOSE: 200 MG

REACTIONS (2)
  - DRUG INTERACTION [None]
  - SEROTONIN SYNDROME [None]
